FAERS Safety Report 25575035 (Version 2)
Quarter: 2025Q3

REPORT INFORMATION
  Report Type: Spontaneous
  Country: US (occurrence: US)
  Receive Date: 20250718
  Receipt Date: 20250923
  Transmission Date: 20251020
  Serious: Yes (Hospitalization, Other)
  Sender: NOVO NORDISK
  Company Number: US-NOVOPROD-1477312

PATIENT
  Age: 77 Year
  Sex: Female

DRUGS (4)
  1. NOVOLIN 70/30 [Suspect]
     Active Substance: INSULIN HUMAN
     Indication: Type 2 diabetes mellitus
     Dosage: 40 IU, QD
     Route: 058
     Dates: start: 2005
  2. NOVOLOG [Concomitant]
     Active Substance: INSULIN ASPART
     Indication: Type 2 diabetes mellitus
     Dates: start: 202506, end: 202507
  3. LANTISEPTIC CALDAZINC OINTMENT [Concomitant]
     Indication: Product used for unknown indication
  4. INSULIN NOS [Concomitant]
     Active Substance: INSULIN NOS
     Indication: Product used for unknown indication

REACTIONS (5)
  - Lung neoplasm malignant [Recovering/Resolving]
  - Brain neoplasm [Recovered/Resolved]
  - Cerebral haemorrhage [Recovered/Resolved]
  - Weight decreased [Unknown]
  - Nodule [Recovered/Resolved]

NARRATIVE: CASE EVENT DATE: 20230101
